FAERS Safety Report 4718562-3 (Version None)
Quarter: 2005Q3

REPORT INFORMATION
  Report Type: 
  Country: None (occurrence: None)
  Receive Date: 20050720
  Receipt Date: 20050713
  Transmission Date: 20060218
  Serious: Yes (Hospitalization, Other)
  Sender: FDA-Public Use
  Company Number: US-BRISTOL-MYERS SQUIBB COMPANY-13038435

PATIENT
  Age: 77 Year
  Sex: Male

DRUGS (13)
  1. CETUXIMAB [Suspect]
     Indication: NON-SMALL CELL LUNG CANCER
     Dosage: ON 4TH COURSE
     Route: 042
     Dates: start: 20050329
  2. CARBOPLATIN [Suspect]
     Indication: NON-SMALL CELL LUNG CANCER
     Dosage: ON 4TH COURSE
     Route: 042
     Dates: start: 20050404
  3. PACLITAXEL [Suspect]
     Indication: NON-SMALL CELL LUNG CANCER
     Dosage: ON 4TH COURSE. GIVEN WEEKLY TIMES 3 DOSES.
     Route: 042
     Dates: start: 20050404
  4. DELSYM [Concomitant]
     Dates: start: 20050419
  5. IMODIUM [Concomitant]
     Dates: start: 20050414
  6. VERAPAMIL [Concomitant]
     Dates: start: 20030101
  7. DIOVAN [Concomitant]
     Dates: start: 20030101
  8. LASIX [Concomitant]
     Dates: start: 20000101
  9. ZANTAC [Concomitant]
     Dates: start: 20050503
  10. MAGNESIUM [Concomitant]
     Dates: start: 20050611
  11. CIPRO [Concomitant]
     Dates: start: 20050613, end: 20050622
  12. ADVAIR DISKUS 100/50 [Concomitant]
     Dates: start: 20050101
  13. UNISOM [Concomitant]
     Dates: start: 20050101

REACTIONS (2)
  - BLOOD MAGNESIUM DECREASED [None]
  - DEHYDRATION [None]
